FAERS Safety Report 9395143 (Version 1)
Quarter: 2013Q3

REPORT INFORMATION
  Report Type: Spontaneous
  Country: JP (occurrence: None)
  Receive Date: 20130705
  Receipt Date: 20130705
  Transmission Date: 20140515
  Serious: Yes (Hospitalization, Other)
  Sender: FDA-Public Use
  Company Number: 2009JP005645

PATIENT
  Age: 44 Year
  Sex: Female

DRUGS (11)
  1. PROGRAF (TACROLIMUS) CAPSULE [Suspect]
     Dosage: 3 MG, UNK/ D, ORAL
     Route: 048
     Dates: start: 20070621
  2. PREDONINE [Suspect]
     Dosage: 20 MG, UNKNOWN/ D, ORAL
     Route: 048
     Dates: start: 20070329, end: 20070425
  3. BENET (RISEDRONATE SODIUM) TABLET [Suspect]
     Dosage: 2.5 MG, UNK/ D, ORAL
     Route: 048
     Dates: start: 20070524
  4. ONEALFA (ALFACALCIDOL) [Concomitant]
  5. TAGAMET [Suspect]
  6. GASLON N (IRSOGLADINE MALEATE) [Concomitant]
  7. SINLESTAL (PROBUCOL) TABLET [Concomitant]
  8. BLOPRESS (CANDESARTAN CILEXETIL) TABLET [Concomitant]
  9. SULBACILLIN [Concomitant]
  10. FLUMARIN /00963302 (FLOMOXEF SODIUM) [Concomitant]
  11. DALACIN-S (CLINDAMYCIN PHOSPHATE) [Concomitant]

REACTIONS (8)
  - Cellulitis [None]
  - Seasonal allergy [None]
  - Hypertension [None]
  - Osteomyelitis [None]
  - Periodontitis [None]
  - Calculus urinary [None]
  - Protein urine present [None]
  - Metrorrhagia [None]
